FAERS Safety Report 11005372 (Version 1)
Quarter: 2015Q2

REPORT INFORMATION
  Report Type: Report from Study
  Country: GB (occurrence: GB)
  Receive Date: 20150409
  Receipt Date: 20150409
  Transmission Date: 20150821
  Serious: Yes (Other)
  Sender: FDA-Public Use
  Company Number: GB-BAYER-2015-117637

PATIENT
  Sex: Female

DRUGS (2)
  1. DIANETTE [Suspect]
     Active Substance: CYPROTERONE ACETATE\ETHINYL ESTRADIOL
     Dosage: UNK
     Route: 048
  2. MIRENA [Suspect]
     Active Substance: LEVONORGESTREL
     Dosage: UNK
     Route: 015

REACTIONS (21)
  - Loss of libido [None]
  - Mood altered [None]
  - Dermatitis atopic [Not Recovered/Not Resolved]
  - Abortion spontaneous [None]
  - Menorrhagia [None]
  - Sleep disorder [None]
  - Fatigue [None]
  - Hemiplegia [Not Recovered/Not Resolved]
  - Crying [None]
  - Arthralgia [Not Recovered/Not Resolved]
  - Vomiting [None]
  - Pregnancy with contraceptive device [None]
  - Genital haemorrhage [None]
  - Hemiplegic migraine [Not Recovered/Not Resolved]
  - Headache [Not Recovered/Not Resolved]
  - Dysgeusia [Not Recovered/Not Resolved]
  - Nausea [None]
  - Pain [Not Recovered/Not Resolved]
  - Food craving [None]
  - Alopecia [Not Recovered/Not Resolved]
  - Device failure [None]
